FAERS Safety Report 4942759-0 (Version None)
Quarter: 2006Q1

REPORT INFORMATION
  Report Type: 
  Country: None (occurrence: None)
  Receive Date: 20060309
  Receipt Date: 20060210
  Transmission Date: 20060701
  Serious: Yes (Hospitalization)
  Sender: FDA-Public Use
  Company Number: 6020488

PATIENT
  Age: 78 Year
  Sex: Female

DRUGS (11)
  1. BISOPROLOL FUMARATE [Suspect]
     Indication: HYPERTENSIVE CARDIOMYOPATHY
     Dosage: ORAL
     Route: 048
  2. COVERSYL (4 MG, TABLET) (PERINDOPRIL) [Suspect]
     Indication: ESSENTIAL HYPERTENSION
     Dosage: ORAL
     Route: 048
  3. LASILIX (40 MG, TABLET) (FUROSEMIDE) [Suspect]
     Indication: ESSENTIAL HYPERTENSION
     Dosage: ORAL
     Route: 048
  4. IMOVANE (ZOPICLONE) [Concomitant]
  5. DEPAKOTE [Concomitant]
  6. KETOPROFEN [Concomitant]
  7. LEVOTHYROXINE SODIUM [Concomitant]
  8. CALCIDOSE (CALCIUM CARBONATE) [Concomitant]
  9. OXYBUTININE [Concomitant]
  10. FUCITHALMIE [Concomitant]
  11. AUGMENTIN '125' [Concomitant]

REACTIONS (12)
  - BRADYCARDIA [None]
  - DEHYDRATION [None]
  - DISORIENTATION [None]
  - DRY SKIN [None]
  - EATING DISORDER [None]
  - FALL [None]
  - INCONTINENCE [None]
  - ORTHOSTATIC HYPOTENSION [None]
  - OVERDOSE [None]
  - RENAL FAILURE [None]
  - TONGUE DRY [None]
  - VISUAL DISTURBANCE [None]
